FAERS Safety Report 5109991-7 (Version None)
Quarter: 2006Q3

REPORT INFORMATION
  Report Type: 
  Country: None (occurrence: None)
  Receive Date: 20060921
  Receipt Date: 20060526
  Transmission Date: 20061208
  Serious: Yes (Death, Hospitalization)
  Sender: FDA-Public Use
  Company Number: IT-BAYER-200612311GDS

PATIENT
  Age: 53 Year
  Sex: Male

DRUGS (6)
  1. SORAFENIB [Suspect]
     Indication: METASTATIC RENAL CELL CARCINOMA
     Dosage: TOTAL DAILY DOSE: 400 MG
     Route: 048
     Dates: start: 20060420, end: 20060515
  2. SORAFENIB [Suspect]
     Dosage: TOTAL DAILY DOSE: 400 MG
     Route: 048
     Dates: start: 20060519, end: 20060528
  3. DEURSIL [Concomitant]
     Indication: BILIARY TRACT DISORDER
     Route: 048
     Dates: start: 20060429, end: 20060528
  4. OMEPRAZOLE [Concomitant]
     Indication: PROPHYLAXIS AGAINST GASTROINTESTINAL ULCER
     Route: 048
     Dates: start: 20060429, end: 20060528
  5. MEDROL [Concomitant]
     Indication: INFLAMMATION
     Route: 048
     Dates: start: 20060429, end: 20060528
  6. CONTRAMAL [Concomitant]
     Indication: ANALGESIC EFFECT
     Route: 058
     Dates: start: 20060429, end: 20060528

REACTIONS (5)
  - ATRIAL FIBRILLATION [None]
  - DISEASE PROGRESSION [None]
  - HYPOVOLAEMIC SHOCK [None]
  - PANCREATITIS HAEMORRHAGIC [None]
  - PERITONEAL NECROSIS [None]
